FAERS Safety Report 24584375 (Version 1)
Quarter: 2024Q4

REPORT INFORMATION
  Report Type: Spontaneous
  Country: AU (occurrence: AU)
  Receive Date: 20241106
  Receipt Date: 20241106
  Transmission Date: 20250114
  Serious: Yes (Other)
  Sender: MYLAN
  Company Number: AU-MYLANLABS-2024M1098865

PATIENT
  Sex: Male

DRUGS (1)
  1. CLOZARIL [Suspect]
     Active Substance: CLOZAPINE
     Indication: Schizophrenia
     Dosage: UNK
     Route: 048
     Dates: start: 20241014, end: 20241022

REACTIONS (4)
  - Pneumonia [Unknown]
  - Cardiac ventricular disorder [Unknown]
  - Troponin increased [Unknown]
  - Blood creatine phosphokinase increased [Unknown]
